FAERS Safety Report 20321746 (Version 1)
Quarter: 2022Q1

REPORT INFORMATION
  Report Type: Spontaneous
  Country: US (occurrence: None)
  Receive Date: 20220111
  Receipt Date: 20220111
  Transmission Date: 20220423
  Serious: Yes (Death)
  Sender: FDA-Public Use
  Company Number: None

PATIENT
  Sex: Male
  Weight: 9 kg

DRUGS (7)
  1. CYTARABINE [Suspect]
     Active Substance: CYTARABINE
  2. DAUNORUBICIN [Suspect]
     Active Substance: DAUNORUBICIN
     Dates: end: 20210804
  3. ZINECARD [Suspect]
     Active Substance: DEXRAZOXANE HYDROCHLORIDE
     Dates: end: 20210824
  4. ETOPOSIDE [Suspect]
     Active Substance: ETOPOSIDE
     Dates: end: 20211005
  5. MYLOTARG [Suspect]
     Active Substance: GEMTUZUMAB OZOGAMICIN
     Dates: end: 20210718
  6. HYDROCORTISONE [Suspect]
     Active Substance: HYDROCORTISONE
     Dates: end: 20210917
  7. METHOTREXATE [Suspect]
     Active Substance: METHOTREXATE
     Dates: end: 20210917

REACTIONS (1)
  - Unresponsive to stimuli [None]

NARRATIVE: CASE EVENT DATE: 20210110
